FAERS Safety Report 4809237-0 (Version None)
Quarter: 2005Q4

REPORT INFORMATION
  Report Type: 
  Country: None (occurrence: None)
  Receive Date: 20051021
  Receipt Date: 20010316
  Transmission Date: 20060501
  Serious: Yes (Other)
  Sender: FDA-Public Use
  Company Number: GBS010308501

PATIENT
  Age: 44 Year
  Sex: Female

DRUGS (4)
  1. ZYPREXA [Suspect]
     Dosage: 15 MG/AT BEDTIME
     Dates: start: 20010216, end: 20010320
  2. SERTRALINE HCL [Concomitant]
  3. ACETAMINOPHEN [Concomitant]
  4. ASPIRIN [Concomitant]

REACTIONS (8)
  - ALANINE AMINOTRANSFERASE INCREASED [None]
  - BLOOD ALKALINE PHOSPHATASE INCREASED [None]
  - EOSINOPHILIA [None]
  - GAMMA-GLUTAMYLTRANSFERASE INCREASED [None]
  - INFLUENZA LIKE ILLNESS [None]
  - MULTIPLE DRUG OVERDOSE [None]
  - NEUTROPHILIA [None]
  - WHITE BLOOD CELL COUNT INCREASED [None]
